FAERS Safety Report 5007622-8 (Version None)
Quarter: 2006Q2

REPORT INFORMATION
  Report Type: 
  Country: None (occurrence: None)
  Receive Date: 20060522
  Receipt Date: 20060205
  Transmission Date: 20061013
  Serious: Yes (Hospitalization)
  Sender: FDA-Public Use
  Company Number: DE-ROCHE-435274

PATIENT
  Age: 25 Year
  Sex: Female
  Weight: 60 kg

DRUGS (2)
  1. INTERFERON ALFA-2A [Suspect]
     Indication: HEPATITIS C
     Route: 065
     Dates: end: 20050715
  2. RIBAVIRIN [Suspect]
     Indication: HEPATITIS C
     Route: 065

REACTIONS (8)
  - ABDOMINAL PAIN LOWER [None]
  - BACK PAIN [None]
  - BACTERIAL INFECTION [None]
  - BLOOD TEST ABNORMAL [None]
  - FACIAL PAIN [None]
  - HEADACHE [None]
  - TINNITUS [None]
  - UROGENITAL DISORDER [None]
